FAERS Safety Report 15784856 (Version 2)
Quarter: 2019Q1

REPORT INFORMATION
  Report Type: Spontaneous
  Country: US (occurrence: US)
  Receive Date: 20190103
  Receipt Date: 20190227
  Transmission Date: 20190417
  Serious: No
  Sender: FDA-Public Use
  Company Number: US-GLENMARK PHARMACEUTICALS-2018GMK038293

PATIENT

DRUGS (1)
  1. PRAMIPEXOLE DIHYDROCHLORIDE. [Suspect]
     Active Substance: PRAMIPEXOLE DIHYDROCHLORIDE
     Indication: BIPOLAR DISORDER
     Dosage: 0.25 MG, BID
     Route: 048
     Dates: start: 20181028, end: 20181112

REACTIONS (7)
  - Nausea [Recovered/Resolved]
  - Product physical issue [Unknown]
  - Intentional product use issue [Unknown]
  - Product quality issue [Unknown]
  - Product substitution issue [Unknown]
  - Malaise [Recovered/Resolved]
  - Headache [Recovered/Resolved]
